FAERS Safety Report 6972952-7 (Version None)
Quarter: 2010Q3

REPORT INFORMATION
  Report Type: 
  Country: None (occurrence: None)
  Receive Date: 20100909
  Receipt Date: 20100521
  Transmission Date: 20110219
  Serious: No
  Sender: FDA-Public Use
  Company Number: US-KINGPHARMUSA00001-K201000642

PATIENT
  Sex: Female
  Weight: 52.154 kg

DRUGS (6)
  1. EMBEDA [Suspect]
     Indication: NEUROPATHY PERIPHERAL
     Dosage: 20 MG, BID
     Route: 048
     Dates: start: 20100201, end: 20100101
  2. EMBEDA [Suspect]
     Dosage: 30 MG, BID
     Route: 048
     Dates: start: 20100101, end: 20100101
  3. EMBEDA [Suspect]
     Dosage: 50 MG, BID
     Route: 048
     Dates: start: 20100101, end: 20100101
  4. EMBEDA [Suspect]
     Dosage: 60 MG, BID
     Route: 048
     Dates: start: 20100101, end: 20100520
  5. ULTRAM [Concomitant]
     Indication: MIGRAINE
     Dosage: UNK
  6. IBUPROFEN [Concomitant]
     Indication: MIGRAINE
     Dosage: UNK

REACTIONS (12)
  - ANORGASMIA [None]
  - CONSTIPATION [None]
  - DRUG INEFFECTIVE [None]
  - FOREIGN BODY SENSATION IN EYES [None]
  - HEADACHE [None]
  - INSOMNIA [None]
  - LETHARGY [None]
  - LOSS OF LIBIDO [None]
  - MIDDLE INSOMNIA [None]
  - POOR QUALITY SLEEP [None]
  - VISION BLURRED [None]
  - VISUAL ACUITY REDUCED [None]
